FAERS Safety Report 4687238-3 (Version None)
Quarter: 2005Q2

REPORT INFORMATION
  Report Type: 
  Country: None (occurrence: None)
  Receive Date: 20050606
  Receipt Date: 20050525
  Transmission Date: 20051028
  Serious: Yes (Hospitalization, Disabling)
  Sender: FDA-Public Use
  Company Number: 2005082011

PATIENT
  Age: 41 Year
  Sex: Female
  Weight: 93 kg

DRUGS (1)
  1. GENOTROPIN [Suspect]
     Indication: HYPOPITUITARISM
     Dosage: SUBCUTANEOUS
     Route: 058
     Dates: start: 20030722, end: 20040902

REACTIONS (2)
  - ABDOMINAL PAIN [None]
  - BENIGN OVARIAN TUMOUR [None]
